FAERS Safety Report 8401191-8 (Version None)
Quarter: 2012Q2

REPORT INFORMATION
  Report Type: 
  Country: None (occurrence: None)
  Receive Date: 20120525
  Receipt Date: 20120514
  Transmission Date: 20120825
  Serious: Yes (Death, Life-Threatening, Other)
  Sender: FDA-Public Use
  Company Number: AUR-APL-2012-02243

PATIENT
  Age: 70 Year
  Sex: Female
  Weight: 80 kg

DRUGS (8)
  1. RIFAMPICIN [Concomitant]
  2. METHOTREXATE [Suspect]
     Indication: PSORIATIC ARTHROPATHY
     Dosage: 20 MG, 1 IN 1 WK, ORAL
     Route: 048
     Dates: end: 20120407
  3. CIPROFLOXACIN (CIPROGLOXACIN) [Concomitant]
  4. GENTAMICIN (GENTAMINCIN) [Concomitant]
  5. ALLOPURINOL [Concomitant]
  6. TEICOPLANIN (TEICOPLANIN) [Concomitant]
  7. CIPROFLOXACIN [Suspect]
     Indication: INFECTION
     Dosage: 2 DOSAGE FORMS (1 DOSAGE FORMS, 2 IN 1 D), ORAL
     Route: 048
     Dates: start: 20110329, end: 20120405
  8. PIPERACILLIN AND TAZOBACTAM [Suspect]
     Indication: INFECTION
     Dosage: 9 GM (4.5 GM, 2 IN 1 D), INTRAVENOUS
     Route: 042
     Dates: start: 20120405

REACTIONS (9)
  - DRUG INTERACTION [None]
  - RENAL FAILURE ACUTE [None]
  - ARTHRITIS BACTERIAL [None]
  - HEPATIC FUNCTION ABNORMAL [None]
  - PANCYTOPENIA [None]
  - HAEMODIALYSIS [None]
  - TACHYCARDIA [None]
  - GENERAL PHYSICAL HEALTH DETERIORATION [None]
  - STEVENS-JOHNSON SYNDROME [None]
